FAERS Safety Report 23030738 (Version 3)
Quarter: 2023Q4

REPORT INFORMATION
  Report Type: Spontaneous
  Country: US (occurrence: US)
  Receive Date: 20231005
  Receipt Date: 20231103
  Transmission Date: 20240110
  Serious: Yes (Life-Threatening, Hospitalization, Other)
  Sender: FDA-Public Use
  Company Number: US-BRISTOL-MYERS SQUIBB COMPANY-2023-139564

PATIENT
  Age: 59 Year
  Sex: Female

DRUGS (1)
  1. POMALYST [Suspect]
     Active Substance: POMALIDOMIDE
     Indication: Plasma cell myeloma
     Dosage: QOD
     Route: 048
     Dates: start: 20230210, end: 20231014

REACTIONS (11)
  - Urinary tract infection [Unknown]
  - Pneumonia [Unknown]
  - Off label use [Unknown]
  - Sepsis [Unknown]
  - Clostridium difficile colitis [Unknown]
  - Bandaemia [Unknown]
  - Acute kidney injury [Unknown]
  - Generalised oedema [Unknown]
  - Atrial fibrillation [Unknown]
  - Hypoglycaemia [Unknown]
  - Shock [Unknown]

NARRATIVE: CASE EVENT DATE: 20230927
